FAERS Safety Report 6412817-2 (Version None)
Quarter: 2009Q4

REPORT INFORMATION
  Report Type: 
  Country: None (occurrence: None)
  Receive Date: 20091023
  Receipt Date: 20091008
  Transmission Date: 20100525
  Serious: Yes (Hospitalization)
  Sender: FDA-Public Use
  Company Number: JP-GENENTECH-288202

PATIENT
  Sex: Male

DRUGS (2)
  1. XOLAIR [Suspect]
     Indication: ASTHMA
     Dosage: 150 MG, 1/MONTH
     Route: 058
     Dates: start: 20090704
  2. XOLAIR [Suspect]
     Dosage: UNK
     Dates: start: 20090901

REACTIONS (2)
  - ASTHMA [None]
  - NAUSEA [None]
